FAERS Safety Report 5021206-7 (Version None)
Quarter: 2006Q2

REPORT INFORMATION
  Report Type: 
  Country: None (occurrence: None)
  Receive Date: 20060425
  Receipt Date: 20050314
  Transmission Date: 20061013
  Serious: No
  Sender: FDA-Public Use
  Company Number: WAES 0503USA02306

PATIENT
  Age: 2 Year

DRUGS (1)
  1. SINGULAIR [Suspect]
     Dosage: 4 MG DAILY PO
     Route: 048

REACTIONS (2)
  - ABNORMAL DREAMS [None]
  - TREMOR [None]
